FAERS Safety Report 19872907 (Version 2)
Quarter: 2021Q3

REPORT INFORMATION
  Report Type: Spontaneous
  Country: GB (occurrence: GB)
  Receive Date: 20210922
  Receipt Date: 20210928
  Transmission Date: 20211014
  Serious: Yes (Death, Other)
  Sender: FDA-Public Use
  Company Number: GB-ASTELLAS-2021US035354

PATIENT
  Sex: Female

DRUGS (1)
  1. PADCEV [Suspect]
     Active Substance: ENFORTUMAB VEDOTIN-EJFV
     Indication: PRODUCT USED FOR UNKNOWN INDICATION
     Dosage: 1.25 MG/KG, CYCLIC (DAY 1 AND DAY 8)
     Route: 065

REACTIONS (3)
  - Transitional cell carcinoma metastatic [Fatal]
  - Rash [Unknown]
  - Malignant neoplasm progression [Fatal]
